FAERS Safety Report 4741393-5 (Version None)
Quarter: 2005Q3

REPORT INFORMATION
  Report Type: 
  Country: None (occurrence: None)
  Receive Date: 20050808
  Receipt Date: 20050725
  Transmission Date: 20060218
  Serious: Yes (Other)
  Sender: FDA-Public Use
  Company Number: 2005105613

PATIENT
  Sex: Female

DRUGS (2)
  1. BENADRYL [Suspect]
     Dosage: UNSPECIFIED AMOUNT ONCE, ORAL
     Route: 048
     Dates: start: 20050725, end: 20050725
  2. IBUPROFEN [Suspect]
     Dosage: UNSPECIFIED AMOUNT ONCE, ORAL
     Route: 048
     Dates: start: 20050725, end: 20050725

REACTIONS (1)
  - CONSCIOUSNESS FLUCTUATING [None]
